FAERS Safety Report 8125947-4 (Version None)
Quarter: 2012Q1

REPORT INFORMATION
  Report Type: 
  Country: None (occurrence: None)
  Receive Date: 20120206
  Receipt Date: 20120125
  Transmission Date: 20120608
  Serious: Yes (Hospitalization)
  Sender: FDA-Public Use
  Company Number: DE-1188691

PATIENT
  Age: 16 Year
  Sex: Female

DRUGS (1)
  1. CYCLOPENTOLATE HCL [Suspect]
     Indication: CYCLOPLEGIC REFRACTION
     Dosage: (GTT 3X10 MINUTES OU OPHTHALMIC)
     Dates: start: 20111014, end: 20111014

REACTIONS (2)
  - DRUG HYPERSENSITIVITY [None]
  - PYREXIA [None]
